FAERS Safety Report 20470331 (Version 2)
Quarter: 2022Q1

REPORT INFORMATION
  Report Type: Spontaneous
  Country: US (occurrence: US)
  Receive Date: 20220214
  Receipt Date: 20220221
  Transmission Date: 20220423
  Serious: No
  Sender: FDA-Public Use
  Company Number: US-ORGANON-O2202USA000992

PATIENT
  Age: 69 Year

DRUGS (1)
  1. ASMANEX [Suspect]
     Active Substance: MOMETASONE FUROATE
     Dosage: 1 PUFF DAILY
     Dates: start: 20220206

REACTIONS (2)
  - Device malfunction [Unknown]
  - Poor quality device used [Unknown]

NARRATIVE: CASE EVENT DATE: 20220206
